FAERS Safety Report 24623624 (Version 1)
Quarter: 2024Q4

REPORT INFORMATION
  Report Type: Report from Study
  Country: CA (occurrence: CA)
  Receive Date: 20241115
  Receipt Date: 20241115
  Transmission Date: 20250115
  Serious: Yes (Other)
  Sender: TAKEDA
  Company Number: CA-TAKEDA-2024TUS113019

PATIENT
  Age: 38 Year
  Sex: Male

DRUGS (4)
  1. VEDOLIZUMAB [Suspect]
     Active Substance: VEDOLIZUMAB
     Indication: Colitis ulcerative
     Dosage: 300 MILLIGRAM
  2. VEDOLIZUMAB [Suspect]
     Active Substance: VEDOLIZUMAB
     Dosage: 300 MILLIGRAM, Q4WEEKS
     Dates: start: 20190214
  3. PREDNISONE [Concomitant]
     Active Substance: PREDNISONE
     Dosage: 25 MILLIGRAM, QD
  4. MESALAMINE [Concomitant]
     Active Substance: MESALAMINE
     Dosage: UNK

REACTIONS (3)
  - Type 2 diabetes mellitus [Recovering/Resolving]
  - Visual impairment [Unknown]
  - Off label use [Unknown]

NARRATIVE: CASE EVENT DATE: 20190214
